FAERS Safety Report 5884228-X (Version None)
Quarter: 2008Q3

REPORT INFORMATION
  Report Type: 
  Country: None (occurrence: None)
  Receive Date: 20080915
  Receipt Date: 20080911
  Transmission Date: 20090109
  Serious: Yes (Hospitalization)
  Sender: FDA-Public Use
  Company Number: MX-B.I. PHARMACEUTICALS,INC./RIDGEFIELD-2008-MX-00002MX

PATIENT

DRUGS (3)
  1. VIRAMUNE [Suspect]
     Indication: HIV INFECTION
     Dosage: NOT REPORTED
  2. ZIDOVUDINE [Concomitant]
     Indication: HIV INFECTION
     Dosage: NOT REPORTED
  3. LAMIVUDINE [Concomitant]
     Indication: HIV INFECTION

REACTIONS (1)
  - ACUTE MYOCARDIAL INFARCTION [None]
